FAERS Safety Report 14079302 (Version 3)
Quarter: 2018Q1

REPORT INFORMATION
  Report Type: Spontaneous
  Country: IT (occurrence: IT)
  Receive Date: 20171012
  Receipt Date: 20180201
  Transmission Date: 20180508
  Serious: Yes (Other)
  Sender: FDA-Public Use
  Company Number: IT-GLAXOSMITHKLINE-IT2017GSK156034

PATIENT
  Age: 89 Year
  Sex: Male

DRUGS (1)
  1. AVODART [Suspect]
     Active Substance: DUTASTERIDE
     Indication: BENIGN PROSTATIC HYPERPLASIA
     Dosage: UNK
     Route: 065
     Dates: start: 201704

REACTIONS (9)
  - Loss of consciousness [Recovered/Resolved]
  - Balance disorder [Recovered/Resolved]
  - Syncope [Recovered/Resolved]
  - Urinary incontinence [Recovered/Resolved]
  - Joint swelling [Recovered/Resolved]
  - Urethral dilatation [Recovered/Resolved]
  - Epilepsy [Unknown]
  - Tremor [Unknown]
  - Aura [Unknown]

NARRATIVE: CASE EVENT DATE: 201704
